FAERS Safety Report 18549474 (Version 1)
Quarter: 2020Q4

REPORT INFORMATION
  Report Type: Other
  Country: NL (occurrence: NL)
  Receive Date: 20201126
  Receipt Date: 20201126
  Transmission Date: 20210114
  Serious: Yes (Life-Threatening, Hospitalization)
  Sender: FDA-Public Use
  Company Number: NL-EMCURE PHARMACEUTICALS LTD-2020-EPL-001925

PATIENT
  Sex: Male
  Weight: 72.8 kg

DRUGS (15)
  1. TRANEXAMIC ACID. [Suspect]
     Active Substance: TRANEXAMIC ACID
     Indication: RECTAL HAEMORRHAGE
     Dosage: 1 GRAM ONCE
     Route: 065
     Dates: start: 20201027
  2. NIFEDIPINE. [Concomitant]
     Active Substance: NIFEDIPINE
     Dosage: 30 MILLIGRAM
     Route: 065
  3. SALBUTAMOL [Concomitant]
     Active Substance: ALBUTEROL
     Dosage: 100 ?G / DOSE (MICROGRAMS PER DOSE)
     Route: 065
  4. PARACETAMOL [Concomitant]
     Active Substance: ACETAMINOPHEN
     Dosage: 500 MILLIGRAM
     Route: 065
  5. CALCIUM CARB / COLECAL / CAD ORANGE [Concomitant]
     Dosage: SACHET (EFFERVESCENT GRANULATE), 1.25 G (GRAM) / 880 UNITS
     Route: 065
  6. CLOPIDOGREL [Concomitant]
     Active Substance: CLOPIDOGREL BISULFATE
     Dosage: 75 MILLIGRAM
     Route: 065
  7. METOPROLOL. [Concomitant]
     Active Substance: METOPROLOL
     Dosage: 50 MILLIGRAM
  8. FENTANYL. [Concomitant]
     Active Substance: FENTANYL
     Dosage: 12 MICROGRAM PER HOUR
     Route: 065
  9. SALMETEROL [Concomitant]
     Active Substance: SALMETEROL
     Dosage: 25 MICROGRAM (SEREVENT AEROSOL 25 MCG / DO CFKVR SPBS 120)
     Route: 065
  10. LOPERAMIDE [Concomitant]
     Active Substance: LOPERAMIDE
     Dosage: 2 MILLIGRAM
     Route: 065
  11. MACROGOL [Concomitant]
     Active Substance: POLYETHYLENE GLYCOLS
     Dosage: 13.8 GRAM, SALTS PDR FOR DRINK (MOVIC / MOLAX / LAXT / GEN)
  12. ATORVASTATIN [Concomitant]
     Active Substance: ATORVASTATIN
     Dosage: 40 MILLIGRAM
     Route: 065
  13. DUROGESIC [Concomitant]
     Active Substance: FENTANYL
     Dosage: 12 MICROGRAM
     Route: 065
  14. OMEPRAZOL [Concomitant]
     Active Substance: OMEPRAZOLE
     Dosage: 20 MILLIGRAM
     Route: 065
  15. LEVODOPA / BENSERAZIDE DISPERTABLET [Concomitant]
     Dosage: TABLET, 100/25 MG (MILLIGRAM)
     Route: 065

REACTIONS (1)
  - Epilepsy [Recovered/Resolved]
